FAERS Safety Report 7955276-0 (Version None)
Quarter: 2011Q4

REPORT INFORMATION
  Report Type: 
  Country: None (occurrence: None)
  Receive Date: 20111202
  Receipt Date: 20111123
  Transmission Date: 20120403
  Serious: Yes (Other)
  Sender: FDA-Public Use
  Company Number: FR-JNJFOC-20111111375

PATIENT
  Age: 49 Year
  Sex: Male

DRUGS (2)
  1. REMICADE [Suspect]
     Route: 042
  2. REMICADE [Suspect]
     Indication: PSORIASIS
     Dosage: SECOND INFUSION
     Route: 042

REACTIONS (6)
  - ASTHENIA [None]
  - BRADYCARDIA [None]
  - MALAISE [None]
  - TACHYCARDIA [None]
  - HYPOTENSION [None]
  - INFUSION RELATED REACTION [None]
